FAERS Safety Report 6181483-6 (Version None)
Quarter: 2009Q2

REPORT INFORMATION
  Report Type: 
  Country: None (occurrence: None)
  Receive Date: 20090504
  Receipt Date: 20090420
  Transmission Date: 20091009
  Serious: Yes (Hospitalization)
  Sender: FDA-Public Use
  Company Number: ADR1402009 (BFARM-09048454

PATIENT
  Age: 81 Year
  Sex: Male

DRUGS (7)
  1. CIPROFLOXACIN [Suspect]
     Indication: ERYSIPELAS
     Dosage: ORAL
     Route: 048
     Dates: start: 20080624, end: 20080705
  2. FALITHROM ^HEXAL^ (PHENPROCOUMON) [Concomitant]
  3. CASODEX [Concomitant]
  4. DIGITOXIN ^MERCK^ [Concomitant]
  5. DIOVAN ^NOVARTIX^ (VALSARTAN) [Concomitant]
  6. FUROSEMIDE [Concomitant]
  7. METAMIZOLE [Concomitant]

REACTIONS (2)
  - DRUG INTERACTION [None]
  - GASTROINTESTINAL HAEMORRHAGE [None]
